FAERS Safety Report 10358368 (Version 1)
Quarter: 2014Q3

REPORT INFORMATION
  Report Type: Report from Study
  Country: ES (occurrence: ES)
  Receive Date: 20140801
  Receipt Date: 20140801
  Transmission Date: 20150326
  Serious: Yes (Hospitalization)
  Sender: FDA-Public Use
  Company Number: ES-TAKEDA-2014TUS006686

PATIENT
  Age: 73 Year
  Sex: Male
  Weight: 83 kg

DRUGS (11)
  1. ACETILCISTEINA [Concomitant]
     Active Substance: ACETYLCYSTEINE
     Indication: ASTHMA
     Dosage: 600 MG, QD
     Route: 048
     Dates: start: 20120519
  2. AAS [Concomitant]
     Active Substance: ASPIRIN
     Indication: PLATELET AGGREGATION INHIBITION
     Dosage: 300 MG, QD
     Route: 048
     Dates: start: 20130216
  3. AZITROMICIN [Concomitant]
     Indication: ASTHMA
     Dosage: 500 MG, QD
     Route: 048
     Dates: start: 20140302, end: 20140303
  4. TERBUTALIN [Concomitant]
     Indication: ASTHMA
     Dosage: 500 MG, QD
     Route: 055
     Dates: start: 20120324
  5. BUDESONID [Concomitant]
     Active Substance: BUDESONIDE
     Indication: ASTHMA
     Dosage: 9 ?G, QD
     Route: 055
     Dates: start: 20090101
  6. OMEPRAZOL                          /00661201/ [Concomitant]
     Active Substance: OMEPRAZOLE
     Dosage: 20 MG, QD
     Route: 048
     Dates: start: 20131016
  7. BLINDED ALLOPURINOL [Suspect]
     Active Substance: ALLOPURINOL
     Indication: HYPERURICAEMIA
     Dosage: UNK
     Route: 065
  8. MONTELUKAST [Concomitant]
     Active Substance: MONTELUKAST SODIUM
     Indication: ASTHMA
     Dosage: 100 MG, QD
     Route: 048
     Dates: start: 20130320
  9. BLINDED FEBUXOSTAT [Suspect]
     Active Substance: FEBUXOSTAT
     Indication: HYPERURICAEMIA
     Dosage: UNK
     Route: 065
  10. FORMOTEROL [Concomitant]
     Active Substance: FORMOTEROL
     Indication: ASTHMA
     Dosage: 320 ?G, QD
     Route: 055
     Dates: start: 20090101
  11. PLACEBO [Suspect]
     Active Substance: UNSPECIFIED INGREDIENT
     Indication: HYPERURICAEMIA
     Dosage: UNK
     Dates: start: 20140223, end: 20140310

REACTIONS (1)
  - Asthma [Recovered/Resolved]

NARRATIVE: CASE EVENT DATE: 20140304
